FAERS Safety Report 18537754 (Version 1)
Quarter: 2020Q4

REPORT INFORMATION
  Report Type: Spontaneous
  Country: SE (occurrence: SE)
  Receive Date: 20201124
  Receipt Date: 20201124
  Transmission Date: 20210114
  Serious: Yes (Other)
  Sender: FDA-Public Use
  Company Number: SE-ABBVIE-20K-150-3660354-00

PATIENT
  Age: 58 Year
  Sex: Female
  Weight: 81 kg

DRUGS (3)
  1. BOTOX [Suspect]
     Active Substance: ONABOTULINUMTOXINA
     Indication: PRODUCT USED FOR UNKNOWN INDICATION
     Dosage: SINGLE
     Route: 065
  2. DUODOPA [Suspect]
     Active Substance: CARBIDOPA\LEVODOPA
     Indication: PARKINSON^S DISEASE
     Dosage: 100 ML,
     Route: 050
     Dates: start: 20140609
  3. DUODOPA [Suspect]
     Active Substance: CARBIDOPA\LEVODOPA

REACTIONS (9)
  - Gait disturbance [Not Recovered/Not Resolved]
  - Weight increased [Unknown]
  - Off label use [Unknown]
  - Back pain [Not Recovered/Not Resolved]
  - Musculoskeletal disorder [Unknown]
  - Kyphosis [Unknown]
  - Mobility decreased [Not Recovered/Not Resolved]
  - Gastrointestinal disorder [Not Recovered/Not Resolved]
  - Abdominal pain [Not Recovered/Not Resolved]

NARRATIVE: CASE EVENT DATE: 20200501
